FAERS Safety Report 18728938 (Version 6)
Quarter: 2021Q2

REPORT INFORMATION
  Report Type: Spontaneous
  Country: JP (occurrence: JP)
  Receive Date: 20210112
  Receipt Date: 20210402
  Transmission Date: 20210717
  Serious: Yes (Other)
  Sender: FDA-Public Use
  Company Number: NVSJ2020JP009040

PATIENT
  Age: 74 Year
  Sex: Male
  Weight: 70.2 kg

DRUGS (3)
  1. BEOVU [Suspect]
     Active Substance: BROLUCIZUMAB-DBLL
     Indication: AGE-RELATED MACULAR DEGENERATION
  2. BEOVU [Suspect]
     Active Substance: BROLUCIZUMAB-DBLL
     Indication: POLYPOIDAL CHOROIDAL VASCULOPATHY
     Dosage: 6 MG
     Route: 031
     Dates: start: 20200811, end: 20200811
  3. GATIFLO [Concomitant]
     Active Substance: GATIFLOXACIN
     Indication: INFECTION PROPHYLAXIS
     Dosage: UNK
     Route: 047
     Dates: start: 20200808, end: 20200814

REACTIONS (10)
  - Anterior chamber inflammation [Recovering/Resolving]
  - Visual acuity reduced [Recovering/Resolving]
  - Eye inflammation [Unknown]
  - Anterior chamber cell [Unknown]
  - Uveitis [Recovered/Resolved]
  - Vitreous opacities [Recovering/Resolving]
  - Vitreous floaters [Unknown]
  - Vision blurred [Unknown]
  - Keratic precipitates [Unknown]
  - Retinal vasculitis [Recovered/Resolved]

NARRATIVE: CASE EVENT DATE: 20200901
